FAERS Safety Report 7816344-7 (Version None)
Quarter: 2011Q4

REPORT INFORMATION
  Report Type: 
  Country: None (occurrence: None)
  Receive Date: 20111017
  Receipt Date: 20111006
  Transmission Date: 20120403
  Serious: Yes (Hospitalization, Other)
  Sender: FDA-Public Use
  Company Number: US-BIOGENIDEC-2011BI035171

PATIENT
  Age: 55 Year
  Sex: Female

DRUGS (2)
  1. TYSABRI [Suspect]
     Indication: MULTIPLE SCLEROSIS
     Route: 042
     Dates: start: 20110303, end: 20110804
  2. TYSABRI [Suspect]
     Route: 042
     Dates: start: 20080715, end: 20100517

REACTIONS (2)
  - MULTIPLE SCLEROSIS RELAPSE [None]
  - ANAEMIA [None]
